FAERS Safety Report 10172690 (Version 1)
Quarter: 2014Q2

REPORT INFORMATION
  Report Type: Spontaneous
  Country: FR (occurrence: FR)
  Receive Date: 20140515
  Receipt Date: 20140515
  Transmission Date: 20141212
  Serious: Yes (Other)
  Sender: FDA-Public Use
  Company Number: FR-ROXANE LABORATORIES, INC.-2014-RO-00725RO

PATIENT
  Age: 15 Year
  Sex: Female

DRUGS (5)
  1. MYCOPHENOLATE MOFETIL [Suspect]
     Indication: DERMATOMYOSITIS
     Route: 065
  2. METHOTREXATE [Suspect]
     Indication: DERMATOMYOSITIS
     Route: 065
  3. METHYLPREDNISOLONE [Suspect]
     Indication: DERMATOMYOSITIS
     Route: 048
  4. METHYLPREDNISOLONE [Suspect]
     Route: 042
  5. HYDROXYCHLOROQUINE [Suspect]
     Indication: DERMATOMYOSITIS
     Route: 065

REACTIONS (1)
  - Osteomyelitis [Unknown]
